FAERS Safety Report 6758786-7 (Version None)
Quarter: 2010Q2

REPORT INFORMATION
  Report Type: 
  Country: None (occurrence: None)
  Receive Date: 20100603
  Receipt Date: 20100524
  Transmission Date: 20101027
  Serious: Yes (Hospitalization, Other)
  Sender: FDA-Public Use
  Company Number: TCI2010A01861

PATIENT
  Age: 51 Year
  Sex: Female

DRUGS (12)
  1. ACTOS [Suspect]
     Indication: DIABETES MELLITUS
     Dosage: 7.5 MG (7.5 MG, 1 IN 1 D) PER ORAL
     Route: 048
     Dates: start: 20060502, end: 20091201
  2. PREDNISOLONE [Suspect]
     Indication: ASTHMA
     Dosage: 18 MG (9 MG, 2 IN 1 D) PER ORAL
     Route: 048
     Dates: start: 19880101
  3. PREDNISOLONE [Suspect]
     Indication: EOSINOPHILIC PNEUMONIA CHRONIC
     Dosage: 18 MG (9 MG, 2 IN 1 D) PER ORAL
     Route: 048
     Dates: start: 19880101
  4. LANSOPRAZOLE [Concomitant]
  5. NOVORAPID 30 MIX (INSULIN ASPART) [Concomitant]
  6. VERAPAMIL HYDROCHLORIDE [Concomitant]
  7. LASIX [Concomitant]
  8. CONIEL (BENIDIPINE HYDROCHLORIDE) [Concomitant]
  9. LOSARTAN POTASSIUM [Concomitant]
  10. COTRIM [Concomitant]
  11. IPD (SUPLATAST TOSILATE) [Concomitant]
  12. THEOLONG (THEOPHYLLINE) [Concomitant]

REACTIONS (14)
  - BLOOD PRESSURE INCREASED [None]
  - CHEST X-RAY ABNORMAL [None]
  - CONVULSION [None]
  - FALL [None]
  - FEMUR FRACTURE [None]
  - GLYCOSYLATED HAEMOGLOBIN INCREASED [None]
  - HYPOGLYCAEMIC COMA [None]
  - NAUSEA [None]
  - OSTEOPOROSIS [None]
  - PALPITATIONS [None]
  - PUTAMEN HAEMORRHAGE [None]
  - VERTEBROBASILAR INSUFFICIENCY [None]
  - VERTIGO [None]
  - VOMITING [None]
